FAERS Safety Report 5266788-5 (Version None)
Quarter: 2007Q1

REPORT INFORMATION
  Report Type: 
  Country: None (occurrence: None)
  Receive Date: 20070312
  Receipt Date: 20070226
  Transmission Date: 20070707
  Serious: Yes (Other)
  Sender: FDA-Public Use
  Company Number: GXKR2007US02030

PATIENT
  Age: 21 Year
  Sex: Female

DRUGS (2)
  1. INDOMETHACIN [Suspect]
     Indication: POLYHYDRAMNIOS
     Dosage: 25 MG, TID
  2. TERBUTALINE SULFATE [Concomitant]

REACTIONS (5)
  - DRUG ADMINISTRATION ERROR [None]
  - DRUG EXPOSURE DURING PREGNANCY [None]
  - PLACENTAL TRANSFUSION SYNDROME [None]
  - PREMATURE BABY [None]
  - STILLBIRTH [None]
